FAERS Safety Report 4802890-7 (Version None)
Quarter: 2005Q4

REPORT INFORMATION
  Report Type: 
  Country: None (occurrence: None)
  Receive Date: 20051019
  Receipt Date: 20051013
  Transmission Date: 20060501
  Serious: Yes (Hospitalization)
  Sender: FDA-Public Use
  Company Number: FR-JNJFOC-20050705716

PATIENT
  Age: 38 Year
  Sex: Female
  Weight: 61 kg

DRUGS (6)
  1. REMICADE [Suspect]
     Dosage: 5 MG/KG.
     Route: 042
  2. REMICADE [Suspect]
     Dosage: 5MG/KG.
     Route: 042
  3. REMICADE [Suspect]
     Indication: CROHN'S DISEASE
     Dosage: 5 MG/ KG.
     Route: 042
  4. IMUREL [Suspect]
     Route: 048
  5. IMUREL [Suspect]
     Indication: CROHN'S DISEASE
     Dosage: 100
     Route: 048
  6. CORTANCYL [Suspect]
     Indication: CROHN'S DISEASE
     Route: 048

REACTIONS (6)
  - HEPATITIS [None]
  - LUNG DISORDER [None]
  - MYOCARDITIS [None]
  - PANCREATITIS [None]
  - PULMONARY EMBOLISM [None]
  - VARICELLA [None]
